FAERS Safety Report 5465969-5 (Version None)
Quarter: 2007Q3

REPORT INFORMATION
  Report Type: 
  Country: None (occurrence: None)
  Receive Date: 20070924
  Receipt Date: 20070917
  Transmission Date: 20080115
  Serious: Yes (Other)
  Sender: FDA-Public Use
  Company Number: US-ROXANE LABORATORIES, INC-2007-BP-21180RO

PATIENT
  Age: 19 Year
  Sex: Female

DRUGS (10)
  1. PREDNISONE [Suspect]
  2. CLOTRIMAZOLE [Suspect]
  3. MYCOPHENOLATE MOFETIL [Suspect]
  4. CYCLOSPORINE [Suspect]
  5. VALGANCICLOVIR HCL [Suspect]
  6. TRIMETHOPRIM + SULFAMETHOXAZOLE [Suspect]
  7. PRAVASTATIN [Suspect]
  8. OMEPRAZOLE [Suspect]
  9. LISINOPRIL [Suspect]
  10. DARBEPOIETIN [Suspect]

REACTIONS (1)
  - NEPHROGENIC SYSTEMIC FIBROSIS [None]
